FAERS Safety Report 11599706 (Version 1)
Quarter: 2015Q3

REPORT INFORMATION
  Report Type: Spontaneous
  Country: US (occurrence: US)
  Receive Date: 20150916
  Receipt Date: 20150916
  Transmission Date: 20151125
  Serious: No
  Sender: FDA-Public Use
  Company Number: US-ELI_LILLY_AND_COMPANY-US200708002219

PATIENT
  Age: 83 Year
  Sex: Female

DRUGS (2)
  1. CORTICOSTEROID NOS [Concomitant]
     Active Substance: CORTICOSTEROID NOS
     Indication: SPINAL COLUMN INJURY
  2. FORTEO [Suspect]
     Active Substance: TERIPARATIDE
     Indication: OSTEOPOROSIS
     Dates: start: 20070807

REACTIONS (8)
  - Tension [Not Recovered/Not Resolved]
  - Injection site pain [Recovered/Resolved]
  - Pain in extremity [Recovered/Resolved]
  - Injection site erythema [Recovered/Resolved]
  - Limb injury [Recovering/Resolving]
  - Tremor [Not Recovered/Not Resolved]
  - Injection site haemorrhage [Recovered/Resolved]
  - Injection site injury [Recovering/Resolving]

NARRATIVE: CASE EVENT DATE: 20070809
